FAERS Safety Report 5889671-0 (Version None)
Quarter: 2008Q3

REPORT INFORMATION
  Report Type: 
  Country: None (occurrence: None)
  Receive Date: 20080919
  Receipt Date: 20080916
  Transmission Date: 20090109
  Serious: Yes (Other)
  Sender: FDA-Public Use
  Company Number: US-ASTRAZENECA-2008UW19191

PATIENT
  Age: 67 Year
  Sex: Female

DRUGS (15)
  1. NEXIUM [Suspect]
     Indication: GASTROOESOPHAGEAL REFLUX DISEASE
     Route: 048
     Dates: start: 20020101
  2. PRILOSEC [Suspect]
     Indication: GASTROOESOPHAGEAL REFLUX DISEASE
     Route: 048
  3. SMOKING CESSATION MEDICATION [Concomitant]
  4. CHEMOTHERAPY [Concomitant]
  5. ASPIRIN [Concomitant]
  6. VITAMIN B-12 [Concomitant]
  7. CALCIUM GLUCONATE [Concomitant]
  8. VITAMIN D [Concomitant]
  9. CENTRUM [Concomitant]
  10. IRON [Concomitant]
  11. LIPITOR [Concomitant]
  12. ATENOLOL [Concomitant]
  13. DETROL [Concomitant]
     Dosage: 4 MG
  14. SPIRIVA [Concomitant]
  15. POTASSIUM CHLORIDE [Concomitant]
     Indication: MUSCLE SPASMS

REACTIONS (8)
  - DRUG INEFFECTIVE [None]
  - DRY MOUTH [None]
  - GASTROOESOPHAGEAL REFLUX DISEASE [None]
  - LUNG NEOPLASM MALIGNANT [None]
  - MALAISE [None]
  - PANIC ATTACK [None]
  - SENSATION OF FOREIGN BODY [None]
  - TREMOR [None]
